FAERS Safety Report 20916863 (Version 1)
Quarter: 2022Q2

REPORT INFORMATION
  Report Type: Spontaneous
  Country: CN (occurrence: CN)
  Receive Date: 20220605
  Receipt Date: 20220605
  Transmission Date: 20220721
  Serious: Yes (Hospitalization, Other)
  Sender: FDA-Public Use
  Company Number: None

PATIENT
  Age: 14 Year
  Sex: Female
  Weight: 60.5 kg

DRUGS (7)
  1. CYCLOPHOSPHAMIDE [Suspect]
     Active Substance: CYCLOPHOSPHAMIDE
     Indication: Acute lymphocytic leukaemia
     Dosage: INJECTION, 0.48 G, QD, CYCLOPHOSPHAMIDE (0.48 G) + NS (100 ML)
     Route: 041
     Dates: start: 20220430, end: 20220430
  2. SODIUM CHLORIDE [Suspect]
     Active Substance: SODIUM CHLORIDE
     Indication: Medication dilution
     Dosage: INJECTION, 100 ML, QD, CYCLOPHOSPHAMIDE (0.48 G) + NS (100 ML)
     Route: 041
     Dates: start: 20220430, end: 20220430
  3. SODIUM CHLORIDE [Suspect]
     Active Substance: SODIUM CHLORIDE
     Dosage: INJECTION, 100 ML, QD, CYTARABINE (0.48 G) + NS (100 ML)
     Route: 041
     Dates: start: 20220430, end: 20220430
  4. VINCRISTINE SULFATE [Suspect]
     Active Substance: VINCRISTINE SULFATE
     Indication: Acute lymphocytic leukaemia
     Dosage: 2 MG, QD, VINCRISTINE (2 MG) + NS (50 ML)
     Route: 041
     Dates: start: 20220430, end: 20220430
  5. DEXAMETHASONE ACETATE [Suspect]
     Active Substance: DEXAMETHASONE ACETATE
     Indication: Acute lymphocytic leukaemia
     Dosage: 4.5 MG, ONCE DAILY, IN THE MORNING
     Route: 048
     Dates: start: 20220430, end: 20220506
  6. DEXAMETHASONE ACETATE [Suspect]
     Active Substance: DEXAMETHASONE ACETATE
     Dosage: 4.875 MG, ONCE DAILY, IN THE EVENING
     Route: 048
     Dates: start: 20220430, end: 20220506
  7. SODIUM CHLORIDE [Suspect]
     Active Substance: SODIUM CHLORIDE
     Indication: Medication dilution
     Dosage: 50 ML, QD, VINCRISTINE (2 MG) + NS (50 ML)
     Route: 041
     Dates: start: 20220430, end: 20220430

REACTIONS (4)
  - White blood cell count decreased [Recovering/Resolving]
  - Neutrophil count decreased [Recovering/Resolving]
  - Haemoglobin decreased [Recovering/Resolving]
  - Myelosuppression [Recovering/Resolving]

NARRATIVE: CASE EVENT DATE: 20220516
